FAERS Safety Report 4867260-4 (Version None)
Quarter: 2005Q4

REPORT INFORMATION
  Report Type: 
  Country: None (occurrence: None)
  Receive Date: 20051228
  Receipt Date: 20051216
  Transmission Date: 20060501
  Serious: Yes (Other)
  Sender: FDA-Public Use
  Company Number: JP-BRISTOL-MYERS SQUIBB COMPANY-13220595

PATIENT
  Age: 66 Year
  Sex: Male

DRUGS (3)
  1. TAXOL [Suspect]
     Indication: BLADDER CANCER
     Route: 042
  2. RANDA [Suspect]
     Route: 042
  3. GEMZAR [Concomitant]
     Route: 042
     Dates: start: 20051127, end: 20051127

REACTIONS (5)
  - DEPRESSED LEVEL OF CONSCIOUSNESS [None]
  - DIZZINESS [None]
  - DYSARTHRIA [None]
  - HEADACHE [None]
  - HEARING IMPAIRED [None]
